FAERS Safety Report 8421883-4 (Version None)
Quarter: 2012Q2

REPORT INFORMATION
  Report Type: 
  Country: None (occurrence: None)
  Receive Date: 20120608
  Receipt Date: 20120601
  Transmission Date: 20120825
  Serious: Yes (Hospitalization)
  Sender: FDA-Public Use
  Company Number: PHHY2012US047188

PATIENT
  Age: 62 Year
  Sex: Female

DRUGS (4)
  1. CLONIDINE [Suspect]
     Dosage: 42 DF, UNK
  2. ACETAMINOPHEN [Suspect]
  3. FUROSEMIDE [Suspect]
     Dosage: 58 DF, UNK
  4. TAMOXIFEN CITRATE [Concomitant]
     Dosage: 10 MG, BID

REACTIONS (10)
  - AMYLASE INCREASED [None]
  - LOSS OF CONSCIOUSNESS [None]
  - ANALGESIC DRUG LEVEL INCREASED [None]
  - BLOOD GLUCOSE INCREASED [None]
  - OVERDOSE [None]
  - HYPOTHERMIA [None]
  - HYPOTENSION [None]
  - BRADYCARDIA [None]
  - BLOOD CREATINE PHOSPHOKINASE INCREASED [None]
  - SUICIDE ATTEMPT [None]
